FAERS Safety Report 24825579 (Version 3)
Quarter: 2025Q1

REPORT INFORMATION
  Report Type: Spontaneous
  Country: PK (occurrence: PK)
  Receive Date: 20250109
  Receipt Date: 20250310
  Transmission Date: 20250408
  Serious: Yes (Other)
  Sender: PFIZER
  Company Number: PK-PFIZER INC-PV202300153289

PATIENT
  Age: 46 Year
  Sex: Female

DRUGS (7)
  1. TRAZIMERA [Suspect]
     Active Substance: TRASTUZUMAB-QYYP
     Indication: Breast cancer metastatic
     Dosage: 440 MG, EVERY 3 WEEKS (Q 21 DAYS)
     Route: 042
     Dates: start: 202309
  2. TRAZIMERA [Suspect]
     Active Substance: TRASTUZUMAB-QYYP
     Dosage: 440 MG, IN 250 MG NS ONCE 90 MINS FOR EVERY AFTER 21 DAYS
     Route: 042
     Dates: start: 202401
  3. PACLITAXEL [Concomitant]
     Active Substance: PACLITAXEL
  4. FEMARA [Concomitant]
     Active Substance: LETROZOLE
  5. ZOMETA [Concomitant]
     Active Substance: ZOLEDRONIC ACID
     Route: 042
  6. BPS [Concomitant]
     Active Substance: BENZOYL PEROXIDE\SULFUR
  7. TRASTUGET [Concomitant]

REACTIONS (8)
  - Oophorectomy [Unknown]
  - Mental disorder [Unknown]
  - Pyrexia [Unknown]
  - Pain [Unknown]
  - Vomiting [Unknown]
  - Nausea [Unknown]
  - Off label use [Unknown]
  - Off label use [Unknown]
